FAERS Safety Report 12331293 (Version 1)
Quarter: 2016Q2

REPORT INFORMATION
  Report Type: Spontaneous
  Country: CN (occurrence: CN)
  Receive Date: 20160504
  Receipt Date: 20160504
  Transmission Date: 20160815
  Serious: Yes (Other)
  Sender: FDA-Public Use
  Company Number: CN-CONCORDIA PHARMACEUTICALS INC.-CO-PL-CN-2016-216

PATIENT
  Age: 32 Year
  Sex: Female

DRUGS (3)
  1. MTX [Concomitant]
     Active Substance: METHOTREXATE SODIUM
     Dates: start: 201005, end: 201602
  2. PLAQUENIL [Suspect]
     Active Substance: HYDROXYCHLOROQUINE SULFATE
     Indication: RHEUMATOID ARTHRITIS
     Route: 048
     Dates: start: 2011
  3. ADALIMUMAB [Concomitant]
     Active Substance: ADALIMUMAB
     Dates: start: 201505, end: 20160401

REACTIONS (2)
  - Abortion induced [Unknown]
  - Exposure during pregnancy [None]

NARRATIVE: CASE EVENT DATE: 20160419
